FAERS Safety Report 23687218 (Version 1)
Quarter: 2024Q1

REPORT INFORMATION
  Report Type: Spontaneous
  Country: GB (occurrence: GB)
  Receive Date: 20240329
  Receipt Date: 20240329
  Transmission Date: 20240410
  Serious: Yes (Hospitalization)
  Sender: FDA-Public Use
  Company Number: None

PATIENT
  Age: 47 Year
  Sex: Female
  Weight: 60 kg

DRUGS (19)
  1. CITALOPRAM [Suspect]
     Active Substance: CITALOPRAM\CITALOPRAM HYDROBROMIDE
     Indication: Product used for unknown indication
     Dosage: 20 MILLIGRAM, QD (TAKE ONE TABLET EACH MORNING)
     Route: 048
     Dates: start: 20240221
  2. ACAMPROSATE CALCIUM [Concomitant]
     Active Substance: ACAMPROSATE CALCIUM
     Dosage: 2 DOSAGE FORM, TID (TAKE TWO TABLETS THREE TIMES A DAY)
     Route: 065
     Dates: start: 20230718
  3. ACYCLOVIR [Concomitant]
     Active Substance: ACYCLOVIR
     Dosage: 1 DOSAGE FORM, 5XD (FIVE TIMES DAILY)
     Route: 065
     Dates: start: 20220117
  4. BETAMETHASONE VALERATE [Concomitant]
     Active Substance: BETAMETHASONE VALERATE
     Dosage: 1 DOSAGE FORM, BID (APPLY TWICE DAILY MAXIMUM TWICE A DAY)
     Route: 065
     Dates: start: 20240320
  5. Cetraben [Concomitant]
     Dosage: 1 DOSAGE FORM, BID (APPLY TWICE DAILY TO SCALP.)
     Route: 065
     Dates: start: 20240320
  6. CYCLIZINE [Concomitant]
     Active Substance: CYCLIZINE
     Indication: Nausea
     Dosage: UNK(TO BE TAKEN THREE TIMES DAILY WHEN REQUIRED FOR NAUSEA)
     Route: 065
     Dates: start: 20240320
  7. DERMOL [Concomitant]
     Active Substance: BENZALKONIUM CHLORIDE\CHLORHEXIDINE HYDROCHLORIDE\ISOPROPYL MYRISTATE\PARAFFIN
     Dosage: USE AS DIRECTED
     Route: 065
     Dates: start: 20220107
  8. ESTRADIOL [Concomitant]
     Active Substance: ESTRADIOL
     Dosage: 1 DOSAGE FORM, BIWEEKLY (APPLY ONE EVOREL 50 PATCH TWICE WEEKLY FOR 2 WEEKS, WITHIN 5 DAYS OF ONSET
     Route: 065
     Dates: start: 20240320
  9. HYDROCORTISONE [Concomitant]
     Active Substance: HYDROCORTISONE
     Dosage: 1 DOSAGE FORM, BID (APPLY TO BE TAKEN TWICE DAILY TO EYE LIDS FOR T...)
     Route: 065
     Dates: start: 20240108, end: 20240109
  10. ISPAGHULA EXTRACT\PSYLLIUM [Concomitant]
     Active Substance: HERBALS\PLANTAGO OVATA SEED\PLANTAGO SEED
     Dosage: 1 DOSAGE FORM, QD (1 OD)
     Route: 065
     Dates: start: 20220107
  11. KETOCONAZOLE [Concomitant]
     Active Substance: KETOCONAZOLE
     Dosage: 1 DOSAGE FORM, BIWEEKLY (USE TO WASH HAIR TWICE A WEEK)
     Route: 065
     Dates: start: 20240129, end: 20240226
  12. POLYETHYLENE GLYCOL\POTASSIUM CHLORIDE\SODIUM BICARBONATE\SODIUM CHLOR [Concomitant]
     Active Substance: POLYETHYLENE GLYCOL\POTASSIUM CHLORIDE\SODIUM BICARBONATE\SODIUM CHLORIDE
     Dosage: 1 DOSAGE FORM, QD (TAKE ONE SACHET DAILY WHILE ISPAGHULA IS UNAVA...)
     Route: 065
     Dates: start: 20231222, end: 20240121
  13. MEBEVERINE HYDROCHLORIDE [Concomitant]
     Active Substance: MEBEVERINE HYDROCHLORIDE
     Dosage: TAKE ONE 3 TIMES/DAY PRN
     Route: 065
     Dates: start: 20220107
  14. MIRTAZAPINE [Concomitant]
     Active Substance: MIRTAZAPINE
     Dosage: 1 DOSAGE FORM, QD (TAKE ONE TABLET EACH NIGHT)
     Route: 065
     Dates: start: 20231228, end: 20240226
  15. ESTRADIOL [Concomitant]
     Active Substance: ESTRADIOL
     Dosage: 3 DOSAGE FORM, QD (APPLY THREE PUMPS ONCE DAILY)
     Route: 065
     Dates: start: 20240221
  16. OMEPRAZOLE [Concomitant]
     Active Substance: OMEPRAZOLE
     Dosage: 1 DOSAGE FORM, QD (TAKE ONE DAILY)
     Route: 065
     Dates: start: 20220107
  17. PROGESTERONE [Concomitant]
     Active Substance: PROGESTERONE
     Dosage: 2 DOSAGE FORM, QD (TAKE TWO CAPSULES ONCE DAILY AT BEDTIME FOR TWE...)
     Route: 065
     Dates: start: 20240221
  18. THIAMINE [Concomitant]
     Active Substance: THIAMINE
     Dosage: 1 DOSAGE FORM, TID (TAKE ONE THREE TIMES A DAY)
     Route: 065
     Dates: start: 20230718
  19. ZOPICLONE [Concomitant]
     Active Substance: ZOPICLONE
     Dosage: 1 DOSAGE FORM (TAKE 1 TABLET (IF NEEDED) AT 22HRS FOR SLEEP, N...)
     Route: 065
     Dates: start: 20240320

REACTIONS (6)
  - Confusional state [Recovered/Resolved]
  - Mydriasis [Recovered/Resolved]
  - Palpitations [Recovered/Resolved]
  - Bruxism [Unknown]
  - Hyperhidrosis [Unknown]
  - Speech disorder [Unknown]

NARRATIVE: CASE EVENT DATE: 20240229
